FAERS Safety Report 4426807-2 (Version None)
Quarter: 2004Q3

REPORT INFORMATION
  Report Type: 
  Country: None (occurrence: None)
  Receive Date: 20040816
  Receipt Date: 20040811
  Transmission Date: 20050211
  Serious: No
  Sender: FDA-Public Use
  Company Number: US-GLAXOSMITHKLINE-A0521812A

PATIENT
  Age: 43 Year
  Sex: Male

DRUGS (3)
  1. WELLBUTRIN [Suspect]
     Indication: DEPRESSION
     Dosage: 300MG PER DAY
     Route: 048
     Dates: start: 20040804
  2. LEXAPRO [Suspect]
  3. CLONAZEPAM [Suspect]

REACTIONS (3)
  - INSOMNIA [None]
  - MEDICATION ERROR [None]
  - SOMNOLENCE [None]
